FAERS Safety Report 9768347 (Version 1)
Quarter: 2013Q4

REPORT INFORMATION
  Report Type: Spontaneous
  Country: US (occurrence: US)
  Receive Date: 20131217
  Receipt Date: 20131217
  Transmission Date: 20140711
  Serious: No
  Sender: FDA-Public Use
  Company Number: US-MYLANLABS-2013S1001632

PATIENT
  Age: 69 Year
  Sex: Female

DRUGS (3)
  1. SELEGILINE HYDROCHLORIDE TABLETS USP [Suspect]
     Indication: DEPRESSION
     Route: 048
     Dates: start: 20130111, end: 20130120
  2. OMEPRAZOLE [Concomitant]
     Indication: GASTROOESOPHAGEAL REFLUX DISEASE
  3. ALPRAZOLAM [Concomitant]
     Indication: ANXIETY

REACTIONS (2)
  - Drug ineffective [Recovered/Resolved]
  - Depression [Recovered/Resolved]
